FAERS Safety Report 17197205 (Version 6)
Quarter: 2022Q2

REPORT INFORMATION
  Report Type: Report from Study
  Country: CN (occurrence: CN)
  Receive Date: 20191224
  Receipt Date: 20220413
  Transmission Date: 20220720
  Serious: Yes (Hospitalization)
  Sender: FDA-Public Use
  Company Number: PHHO2019CN008615

PATIENT
  Age: 59 Year
  Sex: Female
  Weight: 65 kg

DRUGS (11)
  1. EVEROLIMUS [Suspect]
     Active Substance: EVEROLIMUS
     Indication: Breast cancer metastatic
     Dosage: 10 MG, QD
     Route: 048
     Dates: start: 20190525, end: 20190814
  2. EXEMESTANE [Suspect]
     Active Substance: EXEMESTANE
     Indication: Breast cancer metastatic
     Dosage: 25 MG, QD
     Route: 048
     Dates: start: 20190525, end: 20190814
  3. BUFEXAMAC [Concomitant]
     Active Substance: BUFEXAMAC
     Indication: Dermatitis
     Dosage: 2 G, BID
     Route: 003
     Dates: start: 20190828
  4. BUFEXAMAC [Concomitant]
     Active Substance: BUFEXAMAC
     Indication: Drug eruption
  5. LORATADINE [Concomitant]
     Active Substance: LORATADINE
     Indication: Dermatitis
     Dosage: 90 MG, QD
     Route: 048
     Dates: start: 20190824
  6. LORATADINE [Concomitant]
     Active Substance: LORATADINE
     Indication: Drug eruption
  7. METFORMIN HYDROCHLORIDE [Concomitant]
     Active Substance: METFORMIN HYDROCHLORIDE
     Indication: Hyperglycaemia
     Dosage: 0.25 G, BID
     Route: 048
     Dates: start: 20190618
  8. GLYBURIDE\METFORMIN HYDROCHLORIDE [Concomitant]
     Active Substance: GLYBURIDE\METFORMIN HYDROCHLORIDE
     Indication: Hyperglycaemia
     Dosage: 3 G, QD
     Route: 048
     Dates: start: 20190824
  9. DESONIDE [Concomitant]
     Active Substance: DESONIDE
     Indication: Dermatitis
     Dosage: 2 G, BID
     Route: 003
     Dates: start: 20190828
  10. DESONIDE [Concomitant]
     Active Substance: DESONIDE
     Indication: Drug eruption
  11. GLICLAZIDE [Concomitant]
     Active Substance: GLICLAZIDE
     Indication: Diabetes mellitus
     Dosage: 80 MG, QD
     Route: 048
     Dates: start: 20190618, end: 20190712

REACTIONS (1)
  - Subcutaneous abscess [Recovered/Resolved]

NARRATIVE: CASE EVENT DATE: 20190810
